FAERS Safety Report 12256538 (Version 1)
Quarter: 2016Q2

REPORT INFORMATION
  Report Type: Report from Study
  Country: MX (occurrence: MX)
  Receive Date: 20160412
  Receipt Date: 20160412
  Transmission Date: 20160815
  Serious: Yes (Death, Disabling)
  Sender: FDA-Public Use
  Company Number: MX-INCYTE CORPORATION-2015IN004953

PATIENT
  Age: 80 Year
  Sex: Male

DRUGS (2)
  1. JAKAFI [Suspect]
     Active Substance: RUXOLITINIB
     Indication: BONE PAIN
     Dosage: 1 DF, UNK
     Route: 048
  2. JAKAFI [Suspect]
     Active Substance: RUXOLITINIB
     Indication: LEUKAEMIA
     Dosage: 10 MG (2 TABLETS OF 5 MG), QD
     Route: 048
     Dates: start: 201411

REACTIONS (7)
  - Abasia [Unknown]
  - No therapeutic response [Unknown]
  - Leukaemia [Fatal]
  - Product use issue [Unknown]
  - Mobility decreased [Unknown]
  - Feeling abnormal [Unknown]
  - Asthenia [Unknown]

NARRATIVE: CASE EVENT DATE: 201411
